FAERS Safety Report 10389549 (Version 2)
Quarter: 2014Q3

REPORT INFORMATION
  Report Type: Report from Study
  Country: JP (occurrence: JP)
  Receive Date: 20140818
  Receipt Date: 20140818
  Transmission Date: 20150326
  Serious: Yes (Other)
  Sender: FDA-Public Use
  Company Number: JP-ROCHE-1366623

PATIENT
  Age: 58 Year
  Sex: Male

DRUGS (7)
  1. OMALIZUMAB [Suspect]
     Active Substance: OMALIZUMAB
     Route: 058
     Dates: start: 20131219
  2. UNIPHYL [Concomitant]
     Active Substance: THEOPHYLLINE ANHYDROUS
     Route: 065
     Dates: start: 20060523
  3. OMALIZUMAB [Suspect]
     Active Substance: OMALIZUMAB
     Route: 058
     Dates: start: 20140116, end: 20140116
  4. ADOAIR [Concomitant]
     Active Substance: FLUTICASONE PROPIONATE\SALMETEROL XINAFOATE
     Route: 065
     Dates: start: 20131024
  5. OMALIZUMAB [Suspect]
     Active Substance: OMALIZUMAB
     Indication: ASTHMA
     Route: 058
     Dates: start: 20130207
  6. MONTELUKAST [Concomitant]
     Active Substance: MONTELUKAST SODIUM
     Route: 065
     Dates: start: 20060523
  7. TAKEPRON [Concomitant]
     Active Substance: LANSOPRAZOLE
     Route: 065
     Dates: start: 20060515

REACTIONS (8)
  - Pruritus generalised [Unknown]
  - Eosinophil count increased [Not Recovered/Not Resolved]
  - Rash pruritic [Recovering/Resolving]
  - Lymphocyte stimulation test positive [Unknown]
  - Papule [Unknown]
  - Dry skin [Unknown]
  - Pain [Unknown]
  - Pain of skin [Recovering/Resolving]

NARRATIVE: CASE EVENT DATE: 201304
